FAERS Safety Report 6783748-3 (Version None)
Quarter: 2010Q2

REPORT INFORMATION
  Report Type: 
  Country: None (occurrence: None)
  Receive Date: 20100622
  Receipt Date: 20100615
  Transmission Date: 20101027
  Serious: Yes (Other)
  Sender: FDA-Public Use
  Company Number: FR-AMGEN-QUU419407

PATIENT
  Sex: Male

DRUGS (1)
  1. ENBREL [Suspect]
     Indication: PSORIATIC ARTHROPATHY
     Route: 058
     Dates: start: 20060101

REACTIONS (4)
  - ANGINA PECTORIS [None]
  - CHEST PAIN [None]
  - DYSPHONIA [None]
  - ELECTROCARDIOGRAM ABNORMAL [None]
